FAERS Safety Report 12700608 (Version 2)
Quarter: 2017Q1

REPORT INFORMATION
  Report Type: Spontaneous
  Country: US (occurrence: US)
  Receive Date: 20160830
  Receipt Date: 20170213
  Transmission Date: 20170428
  Serious: No
  Sender: FDA-Public Use
  Company Number: GXBR2016US002332

PATIENT
  Age: 37 Year
  Sex: Female
  Weight: 65.76 kg

DRUGS (1)
  1. GLATOPA [Suspect]
     Active Substance: GLATIRAMER ACETATE
     Indication: MULTIPLE SCLEROSIS
     Dosage: 20 MG, QD
     Route: 065
     Dates: start: 201509, end: 20160508

REACTIONS (7)
  - Scar [Not Recovered/Not Resolved]
  - Pyrexia [Recovered/Resolved]
  - Erythema [Recovered/Resolved]
  - Pain in extremity [Recovered/Resolved]
  - Skin discolouration [Recovered/Resolved]
  - Peripheral swelling [Recovered/Resolved]
  - Scab [Recovered/Resolved]

NARRATIVE: CASE EVENT DATE: 20160508
